FAERS Safety Report 7632141 (Version 2)
Quarter: 2020Q3

REPORT INFORMATION
  Report Type: Spontaneous
  Country: US (occurrence: US)
  Receive Date: 20101018
  Receipt Date: 20101111
  Transmission Date: 20201105
  Serious: Yes (Death, Other)
  Sender: FDA-Public Use
  Company Number: US-ROCHE-732288

PATIENT
  Age: 75 Year
  Sex: Female

DRUGS (2)
  1. ACTONEL [Suspect]
     Active Substance: RISEDRONATE SODIUM
     Route: 065
  2. IBANDRONIC ACID. [Suspect]
     Active Substance: IBANDRONIC ACID
     Route: 065

REACTIONS (7)
  - Death [Fatal]
  - Influenza like illness [Unknown]
  - Abdominal discomfort [Unknown]
  - Hypophagia [Unknown]
  - Pain [Unknown]
  - Unevaluable event [None]
  - Acute kidney injury [Unknown]

NARRATIVE: CASE EVENT DATE: 20100129
